FAERS Safety Report 6483595-6 (Version None)
Quarter: 2009Q4

REPORT INFORMATION
  Report Type: 
  Country: None (occurrence: None)
  Receive Date: 20091209
  Receipt Date: 20091202
  Transmission Date: 20100525
  Serious: Yes (Death, Other)
  Sender: FDA-Public Use
  Company Number: PHEH2007US16346

PATIENT
  Sex: Male
  Weight: 75.5 kg

DRUGS (4)
  1. EXJADE [Suspect]
     Indication: MYELODYSPLASTIC SYNDROME
     Dosage: 1500 MG, QD
     Route: 048
     Dates: start: 20061130, end: 20070220
  2. EXJADE [Suspect]
     Indication: SIDEROBLASTIC ANAEMIA
  3. EXJADE [Suspect]
     Indication: LYMPHATIC DISORDER
  4. EXJADE [Suspect]
     Indication: IRON OVERLOAD

REACTIONS (4)
  - DEATH [None]
  - METASTASES TO LIVER [None]
  - NEOPLASM [None]
  - PANCREATIC CARCINOMA METASTATIC [None]
